FAERS Safety Report 12831735 (Version 3)
Quarter: 2016Q4

REPORT INFORMATION
  Report Type: Spontaneous
  Country: US (occurrence: US)
  Receive Date: 20161010
  Receipt Date: 20161118
  Transmission Date: 20170207
  Serious: Yes (Life-Threatening, Hospitalization, Other)
  Sender: FDA-Public Use
  Company Number: US-009507513-1610USA002406

PATIENT
  Age: 51 Year
  Sex: Male
  Weight: 127.5 kg

DRUGS (7)
  1. DEXAMETHASONE. [Suspect]
     Active Substance: DEXAMETHASONE
     Indication: NAUSEA
     Dosage: 2 MG, QD
     Dates: start: 20161003
  2. MARINOL [Concomitant]
     Active Substance: DRONABINOL
     Indication: NAUSEA
  3. PERCOCET [Concomitant]
     Active Substance: ACETAMINOPHEN\OXYCODONE HYDROCHLORIDE
     Indication: HEADACHE
  4. DEXAMETHASONE. [Suspect]
     Active Substance: DEXAMETHASONE
     Indication: HEADACHE
     Dosage: 4 MG, UNK
  5. PERCOCET [Concomitant]
     Active Substance: ACETAMINOPHEN\OXYCODONE HYDROCHLORIDE
     Indication: NAUSEA
     Dosage: 2 TABLET, UNK
  6. DEXAMETHASONE. [Suspect]
     Active Substance: DEXAMETHASONE
     Dosage: 4 MG, UNK
     Route: 042
     Dates: start: 20161003
  7. MARINOL [Concomitant]
     Active Substance: DRONABINOL
     Indication: HEADACHE

REACTIONS (3)
  - Drug ineffective [Unknown]
  - Brain oedema [Unknown]
  - Dysarthria [Unknown]

NARRATIVE: CASE EVENT DATE: 20161003
